FAERS Safety Report 5923355-5 (Version None)
Quarter: 2008Q4

REPORT INFORMATION
  Report Type: 
  Country: None (occurrence: None)
  Receive Date: 20081020
  Receipt Date: 20081009
  Transmission Date: 20090506
  Serious: Yes (Hospitalization)
  Sender: FDA-Public Use
  Company Number: GR-JNJFOC-20081002470

PATIENT
  Age: 70 Year
  Sex: Female
  Weight: 50 kg

DRUGS (4)
  1. REMICADE [Suspect]
     Route: 042
  2. REMICADE [Suspect]
     Indication: TEMPORAL ARTERITIS
     Route: 042
  3. METHOTREXATE [Suspect]
     Indication: TEMPORAL ARTERITIS
     Route: 048
  4. MEDROL [Concomitant]

REACTIONS (2)
  - LEISHMANIASIS [None]
  - PYREXIA [None]
